FAERS Safety Report 18539978 (Version 1)
Quarter: 2020Q4

REPORT INFORMATION
  Report Type: Spontaneous
  Country: AT (occurrence: AT)
  Receive Date: 20201124
  Receipt Date: 20201124
  Transmission Date: 20210114
  Serious: Yes (Other)
  Sender: FDA-Public Use
  Company Number: AT-AMGEN-AUTSP2020187795

PATIENT
  Age: 64 Year
  Sex: Female

DRUGS (3)
  1. BLINCYTO [Suspect]
     Active Substance: BLINATUMOMAB
     Indication: ACUTE LYMPHOCYTIC LEUKAEMIA RECURRENT
     Dosage: UNK
     Route: 065
     Dates: start: 20181017
  2. PONATINIB [Concomitant]
     Active Substance: PONATINIB
     Dosage: UNK
  3. ICLUSIG [Concomitant]
     Active Substance: PONATINIB
     Dosage: 15 MILLIGRAM
     Dates: start: 20181015

REACTIONS (2)
  - Tumour lysis syndrome [Unknown]
  - Thrombosis [Unknown]

NARRATIVE: CASE EVENT DATE: 20181018
